FAERS Safety Report 20516756 (Version 1)
Quarter: 2022Q1

REPORT INFORMATION
  Report Type: Spontaneous
  Country: US (occurrence: US)
  Receive Date: 20220225
  Receipt Date: 20220225
  Transmission Date: 20220423
  Serious: No
  Sender: FDA-Public Use
  Company Number: US-AMGEN-USASP2022031617

PATIENT

DRUGS (1)
  1. AIMOVIG [Suspect]
     Active Substance: ERENUMAB-AOOE
     Indication: Product used for unknown indication
     Dosage: UNK
     Route: 065
     Dates: start: 20220202

REACTIONS (4)
  - SARS-CoV-2 test positive [Unknown]
  - Peripheral swelling [Unknown]
  - Skin irritation [Unknown]
  - Erythema [Unknown]

NARRATIVE: CASE EVENT DATE: 20220209
